FAERS Safety Report 20840981 (Version 7)
Quarter: 2025Q3

REPORT INFORMATION
  Report Type: Spontaneous
  Country: CA (occurrence: CA)
  Receive Date: 20220517
  Receipt Date: 20250820
  Transmission Date: 20251021
  Serious: Yes (Death, Hospitalization)
  Sender: ROCHE
  Company Number: CA-ROCHE-3094535

PATIENT
  Age: 56 Year
  Sex: Female
  Weight: 70.0 kg

DRUGS (9)
  1. RITUXIMAB [Suspect]
     Active Substance: RITUXIMAB
     Indication: Rheumatoid arthritis
     Route: 042
  2. RITUXIMAB [Suspect]
     Active Substance: RITUXIMAB
     Route: 042
  3. RITUXIMAB [Suspect]
     Active Substance: RITUXIMAB
     Route: 050
  4. NAPROXEN SODIUM [Suspect]
     Active Substance: NAPROXEN SODIUM
     Indication: Product used for unknown indication
     Route: 050
  5. NAPROXEN SODIUM [Suspect]
     Active Substance: NAPROXEN SODIUM
     Route: 050
  6. NAPROXEN SODIUM [Suspect]
     Active Substance: NAPROXEN SODIUM
     Dosage: DRUG DOSE FIRST ADMINISTERED IS NOT PROVIDED
     Route: 050
  7. ACTEMRA [Suspect]
     Active Substance: TOCILIZUMAB
     Indication: Rheumatoid arthritis
     Route: 050
  8. ACTEMRA [Suspect]
     Active Substance: TOCILIZUMAB
     Indication: Product used for unknown indication
     Route: 065
  9. ACTEMRA [Suspect]
     Active Substance: TOCILIZUMAB
     Route: 048

REACTIONS (59)
  - Systemic lupus erythematosus [Fatal]
  - Delirium [Fatal]
  - Drug intolerance [Fatal]
  - Abdominal discomfort [Fatal]
  - Rheumatoid arthritis [Fatal]
  - Pain in extremity [Fatal]
  - Mobility decreased [Fatal]
  - Gait disturbance [Fatal]
  - Diabetes mellitus [Fatal]
  - Infection [Fatal]
  - Maternal exposure during pregnancy [Fatal]
  - Drug ineffective [Fatal]
  - Contraindicated product administered [Fatal]
  - Seronegative arthritis [Fatal]
  - Pain [Fatal]
  - Pemphigus [Fatal]
  - Grip strength decreased [Fatal]
  - Amnesia [Fatal]
  - Therapeutic product effect decreased [Fatal]
  - Adjustment disorder with depressed mood [Fatal]
  - Peripheral swelling [Fatal]
  - Drug hypersensitivity [Fatal]
  - Dislocation of vertebra [Fatal]
  - Product use issue [Fatal]
  - Muscular weakness [Fatal]
  - Drug tolerance decreased [Fatal]
  - Alopecia [Fatal]
  - Wound infection [Fatal]
  - Weight decreased [Fatal]
  - Glossodynia [Fatal]
  - Treatment failure [Fatal]
  - Hypersensitivity [Fatal]
  - Off label use [Fatal]
  - Arthropathy [Fatal]
  - Pericarditis [Fatal]
  - Fatigue [Fatal]
  - Hand deformity [Fatal]
  - Rash [Fatal]
  - Swelling [Fatal]
  - Wound [Fatal]
  - Condition aggravated [Fatal]
  - Dizziness [Fatal]
  - Fibromyalgia [Fatal]
  - Liver injury [Fatal]
  - Nausea [Fatal]
  - Oedema [Fatal]
  - Prescribed overdose [Fatal]
  - Psoriatic arthropathy [Fatal]
  - Underdose [Fatal]
  - Vomiting [Fatal]
  - Prescribed underdose [Fatal]
  - Type 2 diabetes mellitus [Fatal]
  - Upper respiratory tract infection [Fatal]
  - Urticaria [Fatal]
  - Visual impairment [Fatal]
  - Weight increased [Fatal]
  - Wheezing [Fatal]
  - Diarrhoea [Fatal]
  - Synovitis [Fatal]
